FAERS Safety Report 7507554-7 (Version None)
Quarter: 2011Q2

REPORT INFORMATION
  Report Type: 
  Country: None (occurrence: None)
  Receive Date: 20110526
  Receipt Date: 20110519
  Transmission Date: 20111010
  Serious: Yes (Hospitalization, Other)
  Sender: FDA-Public Use
  Company Number: US-RB-023662-11

PATIENT
  Age: 65 Year
  Sex: Male

DRUGS (5)
  1. SUBOXONE [Suspect]
     Dosage: SUBLINGUAL FILM- DOSING INFORMATION UNKNOWN
     Route: 065
  2. SUBOXONE [Suspect]
     Indication: DRUG DEPENDENCE
     Dosage: DOSAGE INFORMATION UNKNOWN- SUBLINGUAL FILM
     Route: 060
     Dates: start: 20110401, end: 20110514
  3. COUMADIN [Concomitant]
     Indication: ATRIAL FIBRILLATION
     Dosage: DOSAGE INFORMATION UNKNOWN
     Route: 065
  4. SUBOXONE [Suspect]
     Indication: DRUG DEPENDENCE
     Dosage: DOSING DETAILS UNKNOWN
     Route: 065
  5. SUBOXONE [Suspect]
     Dosage: DOSAGE INFORMATION UNKNOWN- SUBLINGUAL FILM
     Route: 060
     Dates: end: 20110401

REACTIONS (10)
  - PARANOIA [None]
  - DEPRESSION [None]
  - ADVERSE DRUG REACTION [None]
  - INTESTINAL OBSTRUCTION [None]
  - NERVOUSNESS [None]
  - MOOD ALTERED [None]
  - HYPERHIDROSIS [None]
  - DYSPNOEA [None]
  - PRECANCEROUS SKIN LESION [None]
  - PAIN [None]
